FAERS Safety Report 8939184 (Version 1)
Quarter: 2012Q4

REPORT INFORMATION
  Report Type: 
  Country: US (occurrence: US)
  Receive Date: 20121203
  Receipt Date: 20121203
  Transmission Date: 20130627
  Serious: No
  Sender: FDA-Public Use
  Company Number: US-PFIZER INC-2012300970

PATIENT
  Age: 42 Year
  Sex: Female
  Weight: 81.63 kg

DRUGS (1)
  1. PRISTIQ [Suspect]
     Indication: PREMENSTRUAL SYNDROME
     Dosage: 50 mg, 1x/day (daily)
     Dates: start: 201211, end: 20121126

REACTIONS (5)
  - Anxiety [Not Recovered/Not Resolved]
  - Panic attack [Not Recovered/Not Resolved]
  - Headache [Not Recovered/Not Resolved]
  - Diarrhoea [Not Recovered/Not Resolved]
  - Tremor [Not Recovered/Not Resolved]
